FAERS Safety Report 7270826-8 (Version None)
Quarter: 2011Q1

REPORT INFORMATION
  Report Type: 
  Country: None (occurrence: None)
  Receive Date: 20110125
  Receipt Date: 20110125
  Transmission Date: 20110831
  Serious: Yes (Other)
  Sender: FDA-Public Use
  Company Number: None

PATIENT
  Age: 54 Year
  Sex: Male
  Weight: 88.4514 kg

DRUGS (1)
  1. FLOMAX [Suspect]
     Indication: PROSTATOMEGALY
     Dosage: 1 CAPSULE 1 A DAY PO
     Route: 048
     Dates: start: 20101115, end: 20101218

REACTIONS (3)
  - EJACULATION FAILURE [None]
  - SEMEN VOLUME DECREASED [None]
  - ANORGASMIA [None]
